FAERS Safety Report 7546578-0 (Version None)
Quarter: 2011Q2

REPORT INFORMATION
  Report Type: 
  Country: None (occurrence: None)
  Receive Date: 20110607
  Receipt Date: 20110523
  Transmission Date: 20111010
  Serious: Yes (Hospitalization)
  Sender: FDA-Public Use
  Company Number: 2011MA006335

PATIENT
  Age: 14 Year
  Sex: Female

DRUGS (3)
  1. LOXAPINE HCL [Concomitant]
  2. HALOPERIDOL LACTATE [Suspect]
     Indication: CATATONIA
     Dosage: 30 MG;QD
  3. TROPATEPINE [Concomitant]

REACTIONS (19)
  - STUPOR [None]
  - MUTISM [None]
  - SPEECH DISORDER [None]
  - WAXY FLEXIBILITY [None]
  - DECREASED APPETITE [None]
  - INCONTINENCE [None]
  - TACHYCARDIA [None]
  - PSYCHOMOTOR HYPERACTIVITY [None]
  - CATATONIA [None]
  - ACUTE RESPIRATORY DISTRESS SYNDROME [None]
  - HALLUCINATION [None]
  - DYSKINESIA [None]
  - MUSCLE RIGIDITY [None]
  - CONFUSIONAL STATE [None]
  - HYPERREFLEXIA [None]
  - PYREXIA [None]
  - GENERAL PHYSICAL HEALTH DETERIORATION [None]
  - DELIRIUM [None]
  - PARANOIA [None]
